FAERS Safety Report 8590472 (Version 2)
Quarter: 2012Q4

REPORT INFORMATION
  Report Type: 
  Country: US (occurrence: US)
  Receive Date: 20120601
  Receipt Date: 20121029
  Transmission Date: 20130627
  Serious: Yes (Other)
  Sender: FDA-Public Use
  Company Number: US-PFIZER INC-2012129115

PATIENT
  Age: 60 Year
  Sex: Male

DRUGS (1)
  1. CHANTIX [Suspect]
     Indication: SMOKING CESSATION THERAPY
     Dosage: UNK
     Dates: start: 20070711, end: 200712

REACTIONS (7)
  - Suicidal ideation [Not Recovered/Not Resolved]
  - Depression [Not Recovered/Not Resolved]
  - Aggression [Not Recovered/Not Resolved]
  - Anger [Not Recovered/Not Resolved]
  - Abnormal dreams [Unknown]
  - Irritability [Not Recovered/Not Resolved]
  - Anxiety [Not Recovered/Not Resolved]
